FAERS Safety Report 10558508 (Version 1)
Quarter: 2014Q4

REPORT INFORMATION
  Report Type: Spontaneous
  Country: PT (occurrence: PT)
  Receive Date: 20141031
  Receipt Date: 20141031
  Transmission Date: 20150529
  Serious: Yes (Hospitalization)
  Sender: FDA-Public Use
  Company Number: PT-JNJFOC-20141021075

PATIENT
  Sex: Male

DRUGS (1)
  1. SIMPONI [Suspect]
     Active Substance: GOLIMUMAB
     Indication: SPONDYLITIS
     Route: 058
     Dates: start: 2012

REACTIONS (1)
  - Infection [Not Recovered/Not Resolved]

NARRATIVE: CASE EVENT DATE: 20141022
